FAERS Safety Report 14510214 (Version 1)
Quarter: 2018Q1

REPORT INFORMATION
  Report Type: Spontaneous
  Country: US (occurrence: US)
  Receive Date: 20180208
  Receipt Date: 20180208
  Transmission Date: 20180509
  Serious: Yes (Hospitalization)
  Sender: FDA-Public Use
  Company Number: None

PATIENT
  Age: 24 Year
  Sex: Female

DRUGS (29)
  1. PULMOZYME [Suspect]
     Active Substance: DORNASE ALFA
     Indication: CYSTIC FIBROSIS
     Dosage: ?          OTHER ROUTE:INHALATION?
     Route: 055
     Dates: start: 20170613
  2. ZYRTEC [Concomitant]
     Active Substance: CETIRIZINE HYDROCHLORIDE
  3. LEVEMIR [Concomitant]
     Active Substance: INSULIN DETEMIR
  4. LEVOTHYROXIN [Concomitant]
     Active Substance: LEVOTHYROXINE
  5. LEFLUNOMIDE. [Concomitant]
     Active Substance: LEFLUNOMIDE
  6. MONTELUKAST [Concomitant]
     Active Substance: MONTELUKAST SODIUM
  7. ACCU-CHEK [Concomitant]
  8. POLYMYXIN B. [Concomitant]
     Active Substance: POLYMYXIN B
  9. PANCRECARB [Concomitant]
  10. FORADIL [Concomitant]
     Active Substance: FORMOTEROL FUMARATE
  11. SINGULAIR [Concomitant]
     Active Substance: MONTELUKAST SODIUM
  12. XOLAIR [Suspect]
     Active Substance: OMALIZUMAB
     Indication: ASTHMA
     Dosage: ?          OTHER FREQUENCY:Q 2 WEEKS;?
     Route: 058
     Dates: start: 20161215
  13. ALBUTEROL. [Concomitant]
     Active Substance: ALBUTEROL
  14. OMEPRAZOLE. [Concomitant]
     Active Substance: OMEPRAZOLE
  15. NOVOLOG [Concomitant]
     Active Substance: INSULIN ASPART
  16. ITRACONAZOLE. [Concomitant]
     Active Substance: ITRACONAZOLE
  17. PIMOZIDE. [Concomitant]
     Active Substance: PIMOZIDE
  18. PREDNISONE. [Concomitant]
     Active Substance: PREDNISONE
  19. ATENOLOL. [Concomitant]
     Active Substance: ATENOLOL
  20. XOPENEX [Concomitant]
     Active Substance: LEVALBUTEROL HYDROCHLORIDE
  21. HYDROXYCHLOR [Concomitant]
     Active Substance: HYDROXYCHLOROQUINE
  22. BUDESONIDE. [Concomitant]
     Active Substance: BUDESONIDE
  23. RHINOCORT [Concomitant]
     Active Substance: BUDESONIDE
  24. PULMICORT TURBUHALER [Concomitant]
     Active Substance: BUDESONIDE
  25. VALACYCLOVIR [Concomitant]
     Active Substance: VALACYCLOVIR HYDROCHLORIDE
  26. MINOCYCLINE [Concomitant]
     Active Substance: MINOCYCLINE\MINOCYCLINE HYDROCHLORIDE
  27. FREESTYLE TES LITE [Concomitant]
  28. ENULOSE [Concomitant]
     Active Substance: LACTULOSE
  29. AZITHROMYCIN ANHYDROUS. [Concomitant]
     Active Substance: AZITHROMYCIN ANHYDROUS

REACTIONS (2)
  - Cystic fibrosis [None]
  - Condition aggravated [None]

NARRATIVE: CASE EVENT DATE: 20180205
